FAERS Safety Report 13563630 (Version 4)
Quarter: 2017Q3

REPORT INFORMATION
  Report Type: Report from Study
  Country: IT (occurrence: IT)
  Receive Date: 20170519
  Receipt Date: 20170721
  Transmission Date: 20171127
  Serious: Yes (Death, Other)
  Sender: FDA-Public Use
  Company Number: IT-PFIZER INC-2017218313

PATIENT
  Age: 77 Year
  Sex: Male

DRUGS (1)
  1. CEFTAZIDIME. [Suspect]
     Active Substance: CEFTAZIDIME
     Indication: PNEUMONIA BACTERIAL
     Dosage: UNK
     Route: 042
     Dates: start: 20130509, end: 20130516

REACTIONS (1)
  - Acute kidney injury [Fatal]

NARRATIVE: CASE EVENT DATE: 20130513
